FAERS Safety Report 8974917 (Version 1)
Quarter: 2012Q4

REPORT INFORMATION
  Report Type: Report from Study
  Country: US (occurrence: US)
  Receive Date: 20121219
  Receipt Date: 20121219
  Transmission Date: 20130627
  Serious: Yes (Hospitalization)
  Sender: FDA-Public Use
  Company Number: US-BAXTER-2012BAX027284

PATIENT
  Age: 57 Year
  Sex: Female
  Weight: 52.6 kg

DRUGS (5)
  1. CYTOXAN? (CYCLOPHOSPHAMIDE FOR INJECTION, USP) [Suspect]
     Indication: BREAST CANCER
     Route: 065
     Dates: start: 20091021, end: 20100330
  2. BEVACIZUMAB [Suspect]
     Indication: BREAST CANCER
     Dosage: 615 mg
     Route: 065
     Dates: start: 20091021, end: 20100304
  3. CARBOPLATIN [Suspect]
     Indication: BREAST CANCER
     Route: 065
     Dates: start: 20091021, end: 20100203
  4. PACLITAXEL [Suspect]
     Indication: BREAST CANCER
     Route: 065
     Dates: start: 20091021
  5. DOXORUBICIN [Suspect]
     Indication: BREAST CANCER
     Route: 065
     Dates: start: 20100217

REACTIONS (3)
  - Neutropenia [Recovered/Resolved]
  - Mucosal inflammation [Recovered/Resolved]
  - Dehydration [Recovered/Resolved]
